FAERS Safety Report 24036018 (Version 3)
Quarter: 2025Q2

REPORT INFORMATION
  Report Type: Spontaneous
  Country: IL (occurrence: IL)
  Receive Date: 20240701
  Receipt Date: 20250621
  Transmission Date: 20250716
  Serious: Yes (Hospitalization, Other)
  Sender: TEVA
  Company Number: IL-TEVA-VS-3214995

PATIENT
  Age: 83 Year
  Sex: Female

DRUGS (1)
  1. IMATINIB [Suspect]
     Active Substance: IMATINIB
     Indication: Chronic myeloid leukaemia
     Route: 065

REACTIONS (3)
  - Oedema peripheral [Recovered/Resolved]
  - Weight increased [Recovered/Resolved]
  - Fluid retention [Recovered/Resolved]
